FAERS Safety Report 5721111-4 (Version None)
Quarter: 2008Q2

REPORT INFORMATION
  Report Type: 
  Country: None (occurrence: None)
  Receive Date: 20080429
  Receipt Date: 20080415
  Transmission Date: 20081010
  Serious: Yes (Congenital Anomaly)
  Sender: FDA-Public Use
  Company Number: A0695257A

PATIENT
  Sex: Female
  Weight: 3.8 kg

DRUGS (14)
  1. PAXIL [Suspect]
     Indication: DEPRESSION
     Dosage: 37.5MG PER DAY
     Dates: start: 20040223, end: 20060414
  2. PAROXETINE HCL [Suspect]
     Indication: DEPRESSION
     Dosage: 20MG UNKNOWN
     Dates: start: 20050421
  3. METOPROLOL TARTRATE [Concomitant]
     Indication: BLOOD PRESSURE ABNORMAL
     Dates: start: 20030101
  4. TRIAMTERENE AND HYDROCHLOROTHIAZIDE [Concomitant]
     Indication: BLOOD PRESSURE ABNORMAL
     Dates: start: 20030101
  5. LOPRESSOR [Concomitant]
     Indication: HYPERTENSION
     Dates: start: 20040101
  6. WELLBUTRIN SR [Concomitant]
     Indication: DEPRESSION
     Dates: start: 20040201, end: 20060414
  7. KLONOPIN [Concomitant]
     Indication: PANIC DISORDER
     Dates: start: 20040101
  8. DYAZIDE [Concomitant]
     Indication: DIURETIC THERAPY
     Dates: start: 20040101, end: 20050101
  9. VITAMIN TAB [Concomitant]
  10. PITOCIN [Concomitant]
  11. PENICILLIN [Concomitant]
  12. MORPHINE [Concomitant]
  13. PHENERGAN [Concomitant]
  14. BICITRA [Concomitant]

REACTIONS (13)
  - ATRIAL SEPTAL DEFECT [None]
  - CARDIAC FAILURE CONGESTIVE [None]
  - CARDIAC MURMUR [None]
  - CARDIOMEGALY [None]
  - CONGENITAL ANOMALY [None]
  - DILATATION VENTRICULAR [None]
  - DRUG EXPOSURE DURING PREGNANCY [None]
  - GROWTH RETARDATION [None]
  - LEFT ATRIAL DILATATION [None]
  - MITRAL VALVE INCOMPETENCE [None]
  - PNEUMOTHORAX [None]
  - PULMONARY OEDEMA [None]
  - VENTRICULAR SEPTAL DEFECT [None]
